FAERS Safety Report 23260595 (Version 1)
Quarter: 2023Q4

REPORT INFORMATION
  Report Type: Spontaneous
  Country: FR (occurrence: FR)
  Receive Date: 20231205
  Receipt Date: 20231205
  Transmission Date: 20240109
  Serious: Yes (Hospitalization, Other)
  Sender: FDA-Public Use
  Company Number: FR-AFSSAPS-RS2023000919

PATIENT
  Age: 58 Year
  Sex: Female

DRUGS (6)
  1. DIAZEPAM [Suspect]
     Active Substance: DIAZEPAM
     Indication: Product used for unknown indication
     Dosage: 20 MILLIGRAM, ONCE A DAY,10MG IN THE MORNING-10MG IN THE EVENING
     Route: 048
     Dates: end: 202311
  2. CLOZAPINE [Suspect]
     Active Substance: CLOZAPINE
     Indication: Autism spectrum disorder
     Dosage: 300 MILLIGRAM, ONCE A DAY,100MG IN THE MORNING-200MG IN THE EVENING
     Route: 048
     Dates: end: 202311
  3. TRIMEPRAZINE [Suspect]
     Active Substance: TRIMEPRAZINE
     Indication: Autism spectrum disorder
     Dosage: 20 DOSAGE FORM, ONCE A DAY, THE EVENING
     Route: 048
     Dates: end: 202311
  4. PIPAMPERONE [Suspect]
     Active Substance: PIPAMPERONE
     Indication: Autism spectrum disorder
     Dosage: 40 MILLIGRAM, ONCE A DAY,20MG IN THE MORNING-20MG IN THE EVENING
     Route: 048
     Dates: end: 202311
  5. ATROPINE [Suspect]
     Active Substance: ATROPINE\ATROPINE SULFATE
     Indication: Salivary hypersecretion
     Dosage: 5 DOSAGE FORM, ONCE A DAY
     Route: 060
     Dates: end: 202311
  6. LOXAPINE [Suspect]
     Active Substance: LOXAPINE
     Indication: Autism spectrum disorder
     Dosage: UNK UNK, AS NECESSARY
     Route: 065
     Dates: end: 202311

REACTIONS (1)
  - Small intestinal obstruction [Not Recovered/Not Resolved]

NARRATIVE: CASE EVENT DATE: 20231101
